FAERS Safety Report 11139437 (Version 1)
Quarter: 2015Q2

REPORT INFORMATION
  Report Type: Spontaneous
  Country: US (occurrence: None)
  Receive Date: 20150522
  Receipt Date: 20150522
  Transmission Date: 20150821
  Serious: Yes (Death, Hospitalization)
  Sender: FDA-Public Use
  Company Number: COR_00298_2015

PATIENT
  Age: 63 Year
  Sex: Female

DRUGS (4)
  1. SODIUM HYALURONATE [Suspect]
     Active Substance: HYALURONATE SODIUM
     Indication: ARTHRALGIA
     Dosage: 5 YEARS, WAITING SIX MONTHS BETWEEN EACH SERIOUS OF FIVE INJECTIONS INTRA-ARTICULAR?
     Route: 014
  2. HERCEPTIN [Suspect]
     Active Substance: TRASTUZUMAB
     Indication: INVASIVE DUCTAL BREAST CARCINOMA
     Dosage: 1 ROUND?
  3. CARBOPLATIN. [Suspect]
     Active Substance: CARBOPLATIN
     Indication: INVASIVE DUCTAL BREAST CARCINOMA
     Dosage: 1 ROUND
  4. TAXOTERE [Suspect]
     Active Substance: DOCETAXEL
     Indication: INVASIVE DUCTAL BREAST CARCINOMA
     Dosage: 1 ROUND

REACTIONS (1)
  - Necrotising fasciitis [None]
